FAERS Safety Report 18739414 (Version 2)
Quarter: 2021Q1

REPORT INFORMATION
  Report Type: Report from Study
  Country: US (occurrence: US)
  Receive Date: 20210114
  Receipt Date: 20210212
  Transmission Date: 20210419
  Serious: No
  Sender: FDA-Public Use
  Company Number: NVSC2021US007704

PATIENT
  Age: 38 Year
  Sex: Female

DRUGS (1)
  1. ENTRESTO [Suspect]
     Active Substance: SACUBITRIL\VALSARTAN
     Indication: PRODUCT USED FOR UNKNOWN INDICATION
     Dosage: UNK, BID(24/26MG)
     Route: 048
     Dates: start: 20201105

REACTIONS (3)
  - Rhinorrhoea [Unknown]
  - Cough [Unknown]
  - Mobility decreased [Unknown]

NARRATIVE: CASE EVENT DATE: 20210115
